FAERS Safety Report 24979719 (Version 1)
Quarter: 2025Q1

REPORT INFORMATION
  Report Type: Spontaneous
  Country: US (occurrence: US)
  Receive Date: 20250218
  Receipt Date: 20250218
  Transmission Date: 20250408
  Serious: Yes (Hospitalization, Other)
  Sender: RANBAXY
  Company Number: US-SUN PHARMACEUTICAL INDUSTRIES LTD-2025R1-494033

PATIENT
  Age: 66 Year
  Sex: Male
  Weight: 122 kg

DRUGS (4)
  1. EMPAGLIFLOZIN [Suspect]
     Active Substance: EMPAGLIFLOZIN
     Indication: Type 2 diabetes mellitus
     Dosage: 10 MILLIGRAM, DAILY
     Route: 048
  2. DULAGLUTIDE [Suspect]
     Active Substance: DULAGLUTIDE
     Indication: Type 2 diabetes mellitus
     Dosage: (4.5 MG/0.5 ML), WEEKLY
     Route: 058
  3. INSULIN NOS [Suspect]
     Active Substance: INSULIN NOS
     Indication: Type 2 diabetes mellitus
     Dosage: 70/30 60 UNITS, BID
     Route: 058
  4. INSULIN NOS [Suspect]
     Active Substance: INSULIN NOS
     Dosage: 20 TO 30 UNITS, BID
     Route: 058

REACTIONS (2)
  - Osteomyelitis [Unknown]
  - Acute kidney injury [Unknown]
